FAERS Safety Report 7542778-4 (Version None)
Quarter: 2011Q2

REPORT INFORMATION
  Report Type: 
  Country: None (occurrence: None)
  Receive Date: 20110613
  Receipt Date: 20110607
  Transmission Date: 20111010
  Serious: Yes (Other)
  Sender: FDA-Public Use
  Company Number: B0725125A

PATIENT
  Sex: Male
  Weight: 48 kg

DRUGS (38)
  1. ARRANON [Suspect]
     Route: 042
     Dates: start: 20100118, end: 20100122
  2. METHOTREXATE [Concomitant]
     Dates: start: 20080409
  3. CYTARABINE [Concomitant]
     Route: 042
     Dates: start: 20080413
  4. LANSOPRAZOLE [Concomitant]
     Route: 048
     Dates: start: 20080409, end: 20080423
  5. MODACIN [Concomitant]
     Route: 042
     Dates: start: 20080428, end: 20080509
  6. ALLOPURINOL [Concomitant]
     Route: 048
     Dates: start: 20091116, end: 20091206
  7. PREDNISOLONE [Concomitant]
     Dates: start: 20091117, end: 20091130
  8. CYTARABINE [Concomitant]
     Indication: NEOPLASM MALIGNANT
     Dates: start: 20080409
  9. MODACIN [Concomitant]
     Route: 042
     Dates: start: 20091207, end: 20091214
  10. FLUCONAZOLE [Concomitant]
     Route: 042
     Dates: start: 20091117, end: 20091127
  11. PREDNISOLONE [Concomitant]
     Route: 048
     Dates: start: 20091201, end: 20091210
  12. ARRANON [Suspect]
     Dosage: 650MGM2 PER DAY
     Route: 042
     Dates: start: 20080519, end: 20080523
  13. ARRANON [Suspect]
     Dosage: 650MGM2 PER DAY
     Route: 042
     Dates: start: 20091228, end: 20100101
  14. LEUKERIN [Concomitant]
     Indication: NEOPLASM MALIGNANT
     Route: 048
     Dates: start: 20080409, end: 20080413
  15. METHOTREXATE [Concomitant]
     Indication: NEOPLASM MALIGNANT
     Route: 042
     Dates: start: 20080409
  16. CYCLOPHOSPHAMIDE [Concomitant]
     Indication: NEOPLASM MALIGNANT
     Dosage: 60MGK PER DAY
     Route: 065
     Dates: start: 20080720, end: 20080721
  17. TIENAM [Concomitant]
     Dates: start: 20091210, end: 20100106
  18. TIENAM [Concomitant]
     Dates: start: 20100108, end: 20100201
  19. ARRANON [Suspect]
     Dosage: 650MGM2 PER DAY
     Route: 042
     Dates: start: 20091116, end: 20091120
  20. ONCOVIN [Concomitant]
     Indication: NEOPLASM MALIGNANT
     Route: 042
     Dates: start: 20080409, end: 20080414
  21. CYTARABINE [Concomitant]
     Dosage: 4000MGM2 PER DAY
     Dates: start: 20080718, end: 20080718
  22. FLUDARABINE PHOSPHATE [Concomitant]
     Indication: NEOPLASM MALIGNANT
     Dosage: 30MGM2 PER DAY
     Route: 042
     Dates: start: 20080616, end: 20080619
  23. MINOCYCLINE HYDROCHLORIDE [Concomitant]
     Route: 042
     Dates: start: 20091117, end: 20091204
  24. FUNGUARD [Concomitant]
     Route: 042
     Dates: start: 20091210
  25. GRAN [Concomitant]
     Dates: start: 20091210, end: 20091221
  26. ARRANON [Suspect]
     Dosage: 650MGM2 PER DAY
     Route: 042
     Dates: start: 20100208, end: 20100212
  27. DECADRON [Concomitant]
     Indication: NEOPLASM MALIGNANT
     Route: 048
     Dates: start: 20080409, end: 20080413
  28. MINOCYCLINE HYDROCHLORIDE [Concomitant]
     Route: 042
     Dates: start: 20091208
  29. FUNGUARD [Concomitant]
     Route: 042
     Dates: start: 20091128, end: 20091202
  30. AMIKACIN SULFATE [Concomitant]
     Dates: start: 20080430, end: 20080509
  31. MINOCYCLINE HYDROCHLORIDE [Concomitant]
     Route: 042
     Dates: start: 20100108, end: 20100130
  32. CEFAZOLIN [Concomitant]
     Dates: start: 20091112, end: 20091114
  33. CYTARABINE [Concomitant]
     Dosage: 4000MGM2 PER DAY
     Dates: start: 20080616, end: 20080619
  34. FUNGUARD [Concomitant]
     Route: 042
     Dates: start: 20100108, end: 20100130
  35. SOLU-CORTEF [Concomitant]
     Indication: NEOPLASM MALIGNANT
     Dates: start: 20080409
  36. FAMOTIDINE [Concomitant]
     Route: 048
     Dates: start: 20080302, end: 20080408
  37. SULFAMETHOXAZOLE [Concomitant]
     Route: 048
     Dates: start: 20080426, end: 20080426
  38. MODACIN [Concomitant]
     Route: 042
     Dates: start: 20091115, end: 20091130

REACTIONS (2)
  - BONE MARROW FAILURE [None]
  - SENSORY DISTURBANCE [None]
